FAERS Safety Report 10082323 (Version 2)
Quarter: 2014Q2

REPORT INFORMATION
  Report Type: Spontaneous
  Country: IL (occurrence: IL)
  Receive Date: 20140416
  Receipt Date: 20140515
  Transmission Date: 20141212
  Serious: Yes (Hospitalization)
  Sender: FDA-Public Use
  Company Number: IL-B.I. PHARMACEUTICALS,INC./RIDGEFIELD-2014-BI-17027RI

PATIENT
  Age: 77 Year
  Sex: Female

DRUGS (5)
  1. PRADAXA [Suspect]
     Indication: ATRIAL FIBRILLATION
     Dosage: 220 MG
     Route: 065
     Dates: start: 201301, end: 201401
  2. CARDILOC [Concomitant]
     Route: 048
  3. BONDORMIN [Concomitant]
     Route: 048
  4. PROFEX [Concomitant]
     Route: 048
  5. NERVEN [Concomitant]
     Route: 065

REACTIONS (1)
  - Subdural haemorrhage [Recovered/Resolved]
